FAERS Safety Report 10489597 (Version 19)
Quarter: 2015Q1

REPORT INFORMATION
  Report Type: Report from Study
  Country: US (occurrence: US)
  Receive Date: 20141002
  Receipt Date: 20150324
  Transmission Date: 20150720
  Serious: Yes (Hospitalization)
  Sender: FDA-Public Use
  Company Number: US-009507513-1409USA015288

PATIENT
  Age: 46 Year
  Sex: Male
  Weight: 70.9 kg

DRUGS (7)
  1. PEMBROLIZUMAB. [Suspect]
     Active Substance: PEMBROLIZUMAB
     Dosage: 200 MG, Q3W
     Route: 042
     Dates: start: 20141029, end: 20141029
  2. CHLORHEXIDINE GLUCONATE. [Concomitant]
     Active Substance: CHLORHEXIDINE GLUCONATE
     Indication: PROPHYLAXIS
     Dosage: 15 ML, BID
     Route: 050
     Dates: start: 20140120
  3. LORAZEPAM. [Suspect]
     Active Substance: LORAZEPAM
     Indication: ANXIETY
     Dosage: 0.5 MG, QID
     Route: 048
     Dates: start: 20141020, end: 20141025
  4. MORPHINE [Concomitant]
     Active Substance: MORPHINE
     Indication: ORAL PAIN
     Dosage: 15 MG DAILY, PRN
     Route: 048
     Dates: start: 20140808
  5. PEMBROLIZUMAB. [Suspect]
     Active Substance: PEMBROLIZUMAB
     Dosage: 200 MG, Q3W
     Route: 042
     Dates: start: 20141009, end: 20141009
  6. MORPHINE SULFATE. [Concomitant]
     Active Substance: MORPHINE SULFATE
     Indication: ORAL PAIN
     Dosage: 15 MEQ, TID
     Route: 048
     Dates: start: 20140808
  7. PEMBROLIZUMAB. [Suspect]
     Active Substance: PEMBROLIZUMAB
     Indication: HEAD AND NECK CANCER
     Dosage: 200 MG, Q3W
     Route: 042
     Dates: start: 20140919, end: 20140919

REACTIONS (3)
  - Confusional state [Not Recovered/Not Resolved]
  - Swelling face [Not Recovered/Not Resolved]
  - Agitation [Recovered/Resolved]

NARRATIVE: CASE EVENT DATE: 20140924
